FAERS Safety Report 9801485 (Version 1)
Quarter: 2014Q1

REPORT INFORMATION
  Report Type: Spontaneous
  Country: FR (occurrence: FR)
  Receive Date: 20140107
  Receipt Date: 20140107
  Transmission Date: 20141002
  Serious: Yes (Hospitalization)
  Sender: FDA-Public Use
  Company Number: FR-SA-2013SA136305

PATIENT
  Age: 83 Year
  Sex: Male
  Weight: 81.3 kg

DRUGS (14)
  1. LASILIX [Suspect]
     Indication: FLUID RETENTION
     Dosage: SCORED TABLET
     Route: 048
     Dates: end: 20130926
  2. XALATAN [Concomitant]
     Dosage: IN THE EVENING
  3. CORDARONE [Concomitant]
     Dosage: STRENGTH: 200 MG,?1 TABLET 5DAYS/7
  4. INEXIUM [Concomitant]
  5. KARDEGIC [Concomitant]
     Dosage: STRENGTH 75 MG?1 IN NOON
  6. FORLAX [Concomitant]
     Dosage: STRENGTH: 10G
  7. ADANCOR [Concomitant]
     Dosage: STRENGTH:10  MG
  8. PLAVIX [Concomitant]
     Dosage: STRENGTH:75 MG?DOSE: 1DAY
  9. PERINDOPRIL [Concomitant]
     Dosage: (UNKNOWN MANUFATURER)
  10. TAHOR [Concomitant]
     Dosage: STRENGTH: 40 MG?DOSE: 1 IN THE MORNING
  11. CARDENSIEL [Concomitant]
     Dosage: STRENGTH: 1.5 MG?DOSE:1 IN THE MORNING
  12. BRICANYL [Concomitant]
  13. ATROVENT [Concomitant]
  14. DACRYOSERUM [Concomitant]
     Dosage: 4 TO 6 TIMES/DAY

REACTIONS (2)
  - Parotitis [Recovered/Resolved]
  - Dehydration [Recovered/Resolved]
